FAERS Safety Report 17296426 (Version 9)
Quarter: 2021Q3

REPORT INFORMATION
  Report Type: Report from Study
  Country: CA (occurrence: CA)
  Receive Date: 20200121
  Receipt Date: 20210917
  Transmission Date: 20211014
  Serious: Yes (Hospitalization, Other)
  Sender: FDA-Public Use
  Company Number: CA-SA-2018SA283849

PATIENT
  Age: 30 Year
  Sex: Female

DRUGS (27)
  1. AMOXICILLIN. [Suspect]
     Active Substance: AMOXICILLIN
     Indication: COUGH
     Dosage: UNK
     Route: 065
  2. COVID?19 VACCINE NOS. [Suspect]
     Active Substance: COVID-19 VACCINE NOS
     Indication: COVID-19 PROPHYLAXIS
  3. METHYLPREDNISOLONE. [Concomitant]
     Active Substance: METHYLPREDNISOLONE
     Indication: PREMEDICATION
     Dosage: 1 G
     Route: 042
     Dates: start: 20181009, end: 20181011
  4. GRAVOL [Concomitant]
     Active Substance: DIMENHYDRINATE
     Indication: PREMEDICATION
     Dosage: DOSE: 25?50 MG;ROUTE; PO/IV
     Dates: start: 20181009
  5. CETIRIZINE [Concomitant]
     Active Substance: CETIRIZINE HYDROCHLORIDE
  6. FLUTICASONE. [Concomitant]
     Active Substance: FLUTICASONE
  7. ZOFRAN [Concomitant]
     Active Substance: ONDANSETRON HYDROCHLORIDE
     Indication: NAUSEA
     Dosage: 4 MG, PRN
     Route: 048
     Dates: start: 20181010
  8. VENTOLIN [Concomitant]
     Active Substance: ALBUTEROL SULFATE
  9. MYRBETRIQ [Concomitant]
     Active Substance: MIRABEGRON
  10. VITAMIN B12 [Concomitant]
     Active Substance: CYANOCOBALAMIN
  11. VITAMIN D [VITAMIN D NOS] [Concomitant]
     Active Substance: VITAMIN D NOS
  12. PREDNISONE. [Suspect]
     Active Substance: PREDNISONE
     Indication: LOEFGREN SYNDROME
     Dosage: UNK
     Route: 048
  13. METHOTREXATE. [Suspect]
     Active Substance: METHOTREXATE
     Indication: SARCOIDOSIS
     Route: 048
  14. CITALOPRAM [Concomitant]
     Active Substance: CITALOPRAM HYDROBROMIDE
  15. GABAPENTIN. [Concomitant]
     Active Substance: GABAPENTIN
     Dosage: 1500MILLIGRAM
  16. BENADRYL A [Concomitant]
     Active Substance: DIPHENHYDRAMINE HYDROCHLORIDE
     Indication: PREMEDICATION
     Dosage: 50 MG
     Route: 048
     Dates: start: 20181009, end: 20181011
  17. TYLENOL 8HR [Concomitant]
     Active Substance: ACETAMINOPHEN
     Indication: PREMEDICATION
     Dosage: 650 MG
     Route: 048
     Dates: start: 20181009, end: 20181011
  18. TRAZODONE [Concomitant]
     Active Substance: TRAZODONE HYDROCHLORIDE
     Dosage: UNK UNK, PRN
     Route: 048
  19. LAMOTRIGINE. [Concomitant]
     Active Substance: LAMOTRIGINE
     Dosage: UNK UNK, UNK
     Route: 048
  20. VITAMIIN C [Concomitant]
     Active Substance: ASCORBIC ACID
  21. ALEMTUZUMAB [Suspect]
     Active Substance: ALEMTUZUMAB
     Indication: RELAPSING-REMITTING MULTIPLE SCLEROSIS
     Dosage: 12 MG, QD
     Route: 041
     Dates: start: 20181009, end: 20181011
  22. RANITIDINE. [Concomitant]
     Active Substance: RANITIDINE
     Indication: PREMEDICATION
     Dosage: 150 MG, BID
     Route: 048
     Dates: start: 20181009, end: 20181011
  23. ACYCLOVIR [ACICLOVIR] [Concomitant]
     Active Substance: ACYCLOVIR
     Indication: PREMEDICATION
     Dosage: 200 MG, BID
     Route: 048
     Dates: start: 20181009, end: 20181110
  24. PANTOPRAZOLE [Concomitant]
     Active Substance: PANTOPRAZOLE
  25. ADVAIR HFA [Concomitant]
     Active Substance: FLUTICASONE PROPIONATE\SALMETEROL XINAFOATE
     Dosage: 2 PUFFS
  26. PREDNISONE. [Suspect]
     Active Substance: PREDNISONE
     Indication: JOINT SWELLING
  27. MARIJUANA [Concomitant]
     Active Substance: CANNABIS SATIVA SUBSP. INDICA TOP

REACTIONS (60)
  - Loss of consciousness [Recovered/Resolved]
  - Fall [Unknown]
  - Anaemia [Not Recovered/Not Resolved]
  - Abdominal discomfort [Recovered/Resolved]
  - Pruritus [Recovering/Resolving]
  - Neck pain [Recovering/Resolving]
  - Muscular weakness [Recovered/Resolved]
  - Cough [Recovering/Resolving]
  - Rash macular [Not Recovered/Not Resolved]
  - Erythema [Recovered/Resolved]
  - Red blood cells urine positive [Not Recovered/Not Resolved]
  - Candida infection [Recovering/Resolving]
  - Lymphocyte count decreased [Not Recovered/Not Resolved]
  - Skin discolouration [Not Recovered/Not Resolved]
  - Laboratory test abnormal [Not Recovered/Not Resolved]
  - Allergy to arthropod bite [Recovering/Resolving]
  - Contusion [Recovering/Resolving]
  - Platelet count decreased [Not Recovered/Not Resolved]
  - Condition aggravated [Recovering/Resolving]
  - Contusion [Recovered/Resolved]
  - Feeling abnormal [Not Recovered/Not Resolved]
  - Intervertebral disc protrusion [Not Recovered/Not Resolved]
  - Road traffic accident [Not Recovered/Not Resolved]
  - Nasopharyngitis [Recovering/Resolving]
  - Ear infection [Not Recovered/Not Resolved]
  - Pruritus [Not Recovered/Not Resolved]
  - Immune thrombocytopenia [Recovered/Resolved]
  - Cardiac flutter [Recovered/Resolved]
  - Loefgren syndrome [Recovering/Resolving]
  - Stress [Not Recovered/Not Resolved]
  - Drug hypersensitivity [Recovered/Resolved]
  - Hypoaesthesia [Not Recovered/Not Resolved]
  - Back pain [Recovering/Resolving]
  - Skin discolouration [Recovered/Resolved]
  - Nausea [Recovered/Resolved]
  - Amnesia [Not Recovered/Not Resolved]
  - Synovial cyst [Not Recovered/Not Resolved]
  - Concussion [Recovering/Resolving]
  - Nervousness [Not Recovered/Not Resolved]
  - Malaise [Recovering/Resolving]
  - Headache [Recovered/Resolved]
  - Pneumonia [Recovered/Resolved]
  - Urine analysis abnormal [Not Recovered/Not Resolved]
  - Platelet count increased [Recovered/Resolved]
  - Urticaria [Recovering/Resolving]
  - Muscle spasms [Recovering/Resolving]
  - Vomiting [Recovered/Resolved]
  - Joint swelling [Recovered/Resolved]
  - Red cell distribution width increased [Not Recovered/Not Resolved]
  - Anxiety [Recovering/Resolving]
  - White blood cells urine positive [Not Recovered/Not Resolved]
  - Abdominal pain upper [Not Recovered/Not Resolved]
  - White blood cell disorder [Not Recovered/Not Resolved]
  - Eye inflammation [Recovering/Resolving]
  - Middle ear effusion [Recovering/Resolving]
  - Illness [Recovering/Resolving]
  - Weight increased [Not Recovered/Not Resolved]
  - Fatigue [Not Recovered/Not Resolved]
  - Rash [Recovered/Resolved]
  - Rhinitis [Not Recovered/Not Resolved]

NARRATIVE: CASE EVENT DATE: 201810
